FAERS Safety Report 7581289-7 (Version None)
Quarter: 2011Q2

REPORT INFORMATION
  Report Type: 
  Country: None (occurrence: None)
  Receive Date: 20110629
  Receipt Date: 20110624
  Transmission Date: 20111010
  Serious: Yes (Death, Life-Threatening)
  Sender: FDA-Public Use
  Company Number: JP-PFIZER INC-2011127810

PATIENT
  Age: 45 Year
  Sex: Female

DRUGS (3)
  1. REVATIO [Suspect]
     Dosage: 60 MG DAILY
     Route: 048
     Dates: start: 20110426, end: 20110531
  2. REVATIO [Suspect]
     Dosage: 40 MG DAILY
     Route: 048
     Dates: start: 20110422, end: 20110425
  3. REVATIO [Suspect]
     Indication: PULMONARY HYPERTENSION
     Dosage: 20 MG DAILY
     Route: 048
     Dates: start: 20110418, end: 20110421

REACTIONS (1)
  - SUDDEN CARDIAC DEATH [None]
